FAERS Safety Report 13863216 (Version 1)
Quarter: 2017Q3

REPORT INFORMATION
  Report Type: Spontaneous
  Country: US (occurrence: US)
  Receive Date: 20170814
  Receipt Date: 20170814
  Transmission Date: 20171127
  Serious: No
  Sender: FDA-Public Use
  Company Number: US-SHIRE-US201715959

PATIENT
  Sex: Male

DRUGS (1)
  1. GAMMAGARD LIQUID [Suspect]
     Active Substance: HUMAN IMMUNOGLOBULIN G
     Indication: PRODUCT USED FOR UNKNOWN INDICATION
     Dosage: 60 G, 1X/2WKS WITH 500ML NORMAL SALINE PRIOR TO GGL INFUSION AND 500ML NORMAL SALINE AFTER INFUSION
     Route: 042

REACTIONS (3)
  - Fatigue [Unknown]
  - Drug ineffective [Unknown]
  - Sensory loss [Unknown]
